FAERS Safety Report 12312198 (Version 1)
Quarter: 2016Q2

REPORT INFORMATION
  Report Type: Spontaneous
  Country: US (occurrence: US)
  Receive Date: 20160427
  Receipt Date: 20160427
  Transmission Date: 20160815
  Serious: No
  Sender: FDA-Public Use
  Company Number: US-AMGEN-USASP2016049355

PATIENT
  Age: 58 Year
  Sex: Male
  Weight: 108.84 kg

DRUGS (6)
  1. ENBREL [Suspect]
     Active Substance: ETANERCEPT
     Indication: RHEUMATOID ARTHRITIS
     Dosage: 50 MG, QWK
     Route: 058
     Dates: end: 201604
  2. METHOTREXATE [Concomitant]
     Active Substance: METHOTREXATE
  3. ATORVASTATIN [Concomitant]
     Active Substance: ATORVASTATIN
  4. IBUPROFEN. [Concomitant]
     Active Substance: IBUPROFEN
  5. FOLIC ACID. [Concomitant]
     Active Substance: FOLIC ACID
  6. METFORMIN [Concomitant]
     Active Substance: METFORMIN HYDROCHLORIDE

REACTIONS (1)
  - Drug effect decreased [Unknown]
